FAERS Safety Report 7623571-0 (Version None)
Quarter: 2011Q3

REPORT INFORMATION
  Report Type: 
  Country: None (occurrence: None)
  Receive Date: 20110720
  Receipt Date: 20110711
  Transmission Date: 20111222
  Serious: Yes (Hospitalization, Other)
  Sender: FDA-Public Use
  Company Number: US-ASTRAZENECA-2011SE41239

PATIENT
  Sex: Female

DRUGS (3)
  1. NEXIUM [Suspect]
     Route: 048
  2. CRESTOR [Suspect]
     Route: 048
  3. NEXIUM [Suspect]
     Dosage: TWICE DAILY
     Route: 048

REACTIONS (8)
  - ENDOSCOPY [None]
  - THROMBOSIS [None]
  - REHABILITATION THERAPY [None]
  - DRUG PRESCRIBING ERROR [None]
  - CARDIAC OPERATION [None]
  - VASCULAR OPERATION [None]
  - VASCULAR OCCLUSION [None]
  - DRUG INEFFECTIVE [None]
